FAERS Safety Report 4437248-6 (Version None)
Quarter: 2004Q3

REPORT INFORMATION
  Report Type: 
  Country: None (occurrence: None)
  Receive Date: 20040728
  Receipt Date: 20040329
  Transmission Date: 20050211
  Serious: No
  Sender: FDA-Public Use
  Company Number: WAES 0403USA02544

PATIENT
  Sex: Female

DRUGS (3)
  1. EMEND [Suspect]
     Dosage: PO
     Route: 048
  2. ANTINEOPLASTIC (UNSPECIFIED) [Concomitant]
  3. FLUOROURACIL [Concomitant]

REACTIONS (1)
  - SOMNOLENCE [None]
